FAERS Safety Report 17525721 (Version 2)
Quarter: 2020Q1

REPORT INFORMATION
  Report Type: Report from Study
  Country: CA (occurrence: CA)
  Receive Date: 20200310
  Receipt Date: 20200318
  Transmission Date: 20200409
  Serious: Yes (Hospitalization, Other)
  Sender: FDA-Public Use
  Company Number: NVSC2019CA024595

PATIENT
  Sex: Male

DRUGS (8)
  1. SPIRIVA [Concomitant]
     Active Substance: TIOTROPIUM BROMIDE MONOHYDRATE
     Indication: ASTHMA
     Dosage: 2 DF, QD
     Route: 055
  2. VENTOLIN [Concomitant]
     Active Substance: ALBUTEROL SULFATE
     Indication: ASTHMA
     Dosage: 2 DF, PRN
     Route: 055
  3. SANDOZ ALFUZOSIN [Suspect]
     Active Substance: ALFUZOSIN
     Indication: PROSTATIC DISORDER
     Dosage: 10 MG, QD
     Route: 048
  4. SYMBICORT [Concomitant]
     Active Substance: BUDESONIDE\FORMOTEROL FUMARATE DIHYDRATE
     Indication: ASTHMA
     Dosage: 2 DF, BID
     Route: 055
     Dates: start: 201907
  5. SANDOZ MONTELUKAST [Suspect]
     Active Substance: MONTELUKAST SODIUM
     Indication: ASTHMA
     Dosage: 10 MG, QD
     Route: 048
  6. PULMICORT TURBUHALER [Concomitant]
     Active Substance: BUDESONIDE
     Indication: SINUSITIS
     Dosage: 0.5 MG, PRN
     Route: 045
     Dates: start: 2001
  7. PREDNISONE. [Concomitant]
     Active Substance: PREDNISONE
     Indication: ASTHMA
     Dosage: UNK UNK, QD
     Route: 048
     Dates: start: 20190831
  8. BREO ELLIPTA [Concomitant]
     Active Substance: FLUTICASONE FUROATE\VILANTEROL TRIFENATATE
     Indication: ASTHMA
     Dosage: 1 DF, QD
     Route: 055
     Dates: start: 201907

REACTIONS (6)
  - Dyspnoea [Unknown]
  - Respiratory tract infection fungal [Unknown]
  - Asthma [Not Recovered/Not Resolved]
  - Cataract [Unknown]
  - Arthralgia [Unknown]
  - Drug resistance [Unknown]

NARRATIVE: CASE EVENT DATE: 2019
